FAERS Safety Report 21554697 (Version 2)
Quarter: 2022Q4

REPORT INFORMATION
  Report Type: Other
  Country: FR (occurrence: FR)
  Receive Date: 20221104
  Receipt Date: 20221129
  Transmission Date: 20230113
  Serious: Yes (Hospitalization)
  Sender: FDA-Public Use
  Company Number: FR-BoehringerIngelheim-2022-BI-199477

PATIENT
  Age: 58 Year
  Sex: Female
  Weight: 65 kg

DRUGS (1)
  1. ALTEPLASE [Suspect]
     Active Substance: ALTEPLASE
     Indication: Subarachnoid haemorrhage
     Route: 018
     Dates: start: 20221011, end: 20221013

REACTIONS (1)
  - Meningitis chemical [Recovered/Resolved]

NARRATIVE: CASE EVENT DATE: 20221022
